FAERS Safety Report 9746219 (Version 3)
Quarter: 2014Q2

REPORT INFORMATION
  Report Type: Spontaneous
  Country: IT (occurrence: IT)
  Receive Date: 20131211
  Receipt Date: 20140418
  Transmission Date: 20141212
  Serious: Yes (Hospitalization)
  Sender: FDA-Public Use
  Company Number: IT-CELGENEUS-083-21880-13115501

PATIENT
  Age: 75 Year
  Sex: Female
  Weight: 97 kg

DRUGS (5)
  1. REVLIMID [Suspect]
     Indication: PLASMA CELL MYELOMA
     Dosage: 25 MILLIGRAM
     Route: 048
     Dates: start: 20131030, end: 2013
  2. DEXAMETHASONE [Suspect]
     Indication: PLASMA CELL MYELOMA
     Dosage: 40 MILLIGRAM
     Route: 048
     Dates: start: 20131030, end: 2013
  3. MLN9708/PLACEBO [Suspect]
     Indication: PLASMA CELL MYELOMA
     Dosage: 4 MILLIGRAM
     Route: 048
     Dates: start: 20131030, end: 2013
  4. DEXANE [Concomitant]
     Indication: THROMBOSIS PROPHYLAXIS
     Dosage: U
     Route: 058
     Dates: start: 20131030
  5. ACICLOVIR [Concomitant]
     Indication: ANTIVIRAL PROPHYLAXIS
     Dosage: 400 MILLIGRAM
     Route: 048
     Dates: start: 20131030

REACTIONS (4)
  - Sepsis [Recovered/Resolved]
  - Altered state of consciousness [Recovered/Resolved]
  - Renal failure [Recovering/Resolving]
  - Electrolyte imbalance [Recovered/Resolved]
